FAERS Safety Report 13197526 (Version 19)
Quarter: 2019Q3

REPORT INFORMATION
  Report Type: Spontaneous
  Country: US (occurrence: US)
  Receive Date: 20170208
  Receipt Date: 20190913
  Transmission Date: 20191004
  Serious: Yes (Hospitalization, Other)
  Sender: FDA-Public Use
  Company Number: US-PFIZER INC-2017056061

PATIENT
  Age: 68 Year
  Sex: Male

DRUGS (62)
  1. CELONTIN [Concomitant]
     Active Substance: METHSUXIMIDE
     Dosage: UNK, 2X/DAY
     Dates: start: 1962
  2. ASPIRIN. [Concomitant]
     Active Substance: ASPIRIN
     Dosage: 81 MG, UNK (MORNING)
     Dates: start: 20171208
  3. ZONEGRAN [Concomitant]
     Active Substance: ZONISAMIDE
     Dosage: UNK, 2X/DAY
     Dates: start: 2018
  4. PLAVIX [Concomitant]
     Active Substance: CLOPIDOGREL BISULFATE
     Dosage: 75 MG, DAILY
     Route: 048
     Dates: start: 20180705, end: 20181226
  5. LOPRESSOR [Concomitant]
     Active Substance: METOPROLOL TARTRATE
     Dosage: 25 MG, 2X/DAY
     Route: 048
     Dates: start: 20140512, end: 20150319
  6. BACTRIM DS [Concomitant]
     Active Substance: SULFAMETHOXAZOLE\TRIMETHOPRIM
     Dosage: 800 MG, 2X/DAY
     Route: 048
     Dates: end: 20160428
  7. DILANTIN [Suspect]
     Active Substance: PHENYTOIN
     Dosage: 3 DF (THREE CAPSULES), AT NIGHT TIME
     Route: 048
  8. DILANTIN [Suspect]
     Active Substance: PHENYTOIN
     Dosage: 300 MG, AS NEEDED (200 MG MORNING, 100 MG NIGHT)
     Dates: start: 20171208
  9. ZONEGRAN [Concomitant]
     Active Substance: ZONISAMIDE
     Indication: SEIZURE
     Dosage: 2 DF, 1X/DAY
     Route: 048
     Dates: start: 20161214, end: 20170622
  10. ZONEGRAN [Concomitant]
     Active Substance: ZONISAMIDE
     Dosage: 300 MG, UNK (100 MG MORNING, 200 MG NIGHT)
     Dates: start: 20171208
  11. ALPRAZOLAM. [Concomitant]
     Active Substance: ALPRAZOLAM
     Indication: SLEEP DISORDER
     Dosage: 0.25 MG, AS NEEDED (AT BEDTIME)
     Dates: start: 20171208
  12. ALPRAZOLAM. [Concomitant]
     Active Substance: ALPRAZOLAM
     Dosage: UNK, AS NEEDED
     Dates: start: 2015
  13. ACETAMINOPHEN-HYDROCODONE [Concomitant]
     Active Substance: ACETAMINOPHEN\HYDROCODONE
     Indication: PAIN
     Dosage: 7.5 MG, EVERY 4 TO 6 HOURS (AS NEEDED)
  14. MELOXICAM. [Concomitant]
     Active Substance: MELOXICAM
     Indication: BACK DISORDER
     Dosage: UNK
     Dates: start: 2015
  15. ATIVAN [Concomitant]
     Active Substance: LORAZEPAM
     Indication: SEIZURE
     Dosage: UNK UNK, AS NEEDED (1/2-1 TABLET)
     Route: 048
     Dates: start: 20151117, end: 20160428
  16. DILANTIN [Suspect]
     Active Substance: PHENYTOIN
     Indication: SEIZURE
     Dosage: UNK
     Dates: start: 1962, end: 2017
  17. DILANTIN [Suspect]
     Active Substance: PHENYTOIN
     Dosage: 200 MG, DAILY
     Route: 048
     Dates: start: 20141023, end: 20141025
  18. ECOTRIN [Concomitant]
     Active Substance: ASPIRIN
     Dosage: 81 MG, UNK
     Dates: start: 20120118
  19. CELONTIN [Concomitant]
     Active Substance: METHSUXIMIDE
     Dosage: 300 MG, 2X/DAY
     Route: 048
  20. XANAX [Concomitant]
     Active Substance: ALPRAZOLAM
     Indication: SEIZURE
     Dosage: 0.25 MG, 3X/DAY (AS NEEDED)
     Route: 048
     Dates: start: 20150929, end: 20160419
  21. DILANTIN [Suspect]
     Active Substance: PHENYTOIN
     Dosage: 500 MG, DAILY (2 CAPSULES OF 100 MG EVERY 05:00 HRS AND 3 CAPSULES OF 100 MG EVERY 17:00 HRS)
     Route: 048
     Dates: start: 20140112
  22. DILANTIN [Suspect]
     Active Substance: PHENYTOIN
     Dosage: 100 MG, 4X/DAY (2 CAPSULES OF 100 MG EVERY 05:00 HRS AND 2 CAPSULES OF 100 MG EVERY 17:00 HRS
     Route: 048
     Dates: start: 20140113
  23. MIRALAX [Concomitant]
     Active Substance: POLYETHYLENE GLYCOL 3350
     Dosage: UNK, DAILY
     Dates: start: 20171208
  24. ZONEGRAN [Concomitant]
     Active Substance: ZONISAMIDE
     Dosage: UNK
     Dates: start: 2017
  25. OXYCODONE [Concomitant]
     Active Substance: OXYCODONE
     Indication: PAIN
     Dosage: 15 MG, EVERY 4 HRS (AS NEED)
     Dates: start: 20171208
  26. PLAVIX [Concomitant]
     Active Substance: CLOPIDOGREL BISULFATE
     Dosage: 75 MG, DAILY
     Route: 048
     Dates: start: 20150707, end: 20170721
  27. LOPRESSOR [Concomitant]
     Active Substance: METOPROLOL TARTRATE
     Dosage: 25 MG, 2X/DAY
     Route: 048
     Dates: start: 20150319, end: 20170909
  28. SEPTRA DS [Concomitant]
     Active Substance: SULFAMETHOXAZOLE\TRIMETHOPRIM
     Dosage: 160 MG, 2X/DAY
     Route: 048
     Dates: end: 20160428
  29. MOBIC [Concomitant]
     Active Substance: MELOXICAM
     Dosage: 15 MG, DAILY
     Route: 048
     Dates: start: 20160308
  30. DILANTIN [Suspect]
     Active Substance: PHENYTOIN
     Dosage: 2 DF (TWO CAPSULES), EVERY MORNING
     Route: 048
  31. DILANTIN [Suspect]
     Active Substance: PHENYTOIN
     Dosage: 1000 MG, SINGLE
     Route: 042
     Dates: start: 20141026, end: 20141026
  32. MIRALAX [Concomitant]
     Active Substance: POLYETHYLENE GLYCOL 3350
     Dosage: UNK
     Dates: start: 20141025
  33. CELONTIN [Concomitant]
     Active Substance: METHSUXIMIDE
     Indication: SEIZURE
     Dosage: UNK
     Dates: start: 1965
  34. CELONTIN [Concomitant]
     Active Substance: METHSUXIMIDE
     Dosage: 600 MG, UNK (300 MG MORNING, 300 MG NIGHT)
     Dates: start: 20171208
  35. METOPROLOL SUCCINATE. [Concomitant]
     Active Substance: METOPROLOL SUCCINATE
     Dosage: 50 MG, UNK (25 MG MORNING, 25 MG NIGHT)
     Dates: start: 20171208
  36. ZETIA [Concomitant]
     Active Substance: EZETIMIBE
     Dosage: 10 MG, UNK (NIGHT)
     Dates: start: 20171208
  37. XANAX [Concomitant]
     Active Substance: ALPRAZOLAM
     Indication: ANXIETY
     Dosage: 0.25 MG, 2X/DAY
     Route: 048
  38. XANAX [Concomitant]
     Active Substance: ALPRAZOLAM
     Dosage: 0.25 MG, 4X/DAY (AS NEEDED)
     Route: 048
     Dates: start: 20160428, end: 20170427
  39. AMOXIL [Concomitant]
     Active Substance: AMOXICILLIN
     Dosage: 500 MG, UNK
     Dates: start: 20181118, end: 20190603
  40. DILANTIN [Suspect]
     Active Substance: PHENYTOIN
     Dosage: 2 DF (TWO CAPSULES), EVERY 48 HOURS
     Route: 048
  41. DILANTIN [Suspect]
     Active Substance: PHENYTOIN
     Indication: SEIZURE
     Dosage: UNK
     Dates: start: 1962
  42. ZETIA [Concomitant]
     Active Substance: EZETIMIBE
     Dosage: 10 MG, DAILY (EVERY NIGHT AT BEDTIME)
     Route: 048
  43. ZETIA [Concomitant]
     Active Substance: EZETIMIBE
     Dosage: 10 MG, DAILY
     Route: 048
     Dates: start: 20150615, end: 20170622
  44. TRAMADOL. [Concomitant]
     Active Substance: TRAMADOL
     Indication: PAIN
     Dosage: 50 MG, UNK (EVERY 6 HOURS)
     Dates: start: 20171208
  45. PLAVIX [Concomitant]
     Active Substance: CLOPIDOGREL BISULFATE
     Indication: ANTICOAGULANT THERAPY
     Dosage: UNK
     Dates: start: 2003
  46. PLAVIX [Concomitant]
     Active Substance: CLOPIDOGREL BISULFATE
     Dosage: 75 MG, DAILY
     Route: 048
     Dates: start: 20131220, end: 20140929
  47. XANAX [Concomitant]
     Active Substance: ALPRAZOLAM
     Dosage: 1/2-1 TABLET, AS NEEDED
     Route: 048
     Dates: start: 20160419, end: 20160428
  48. METOPROLOL TARTRATE. [Concomitant]
     Active Substance: METOPROLOL TARTRATE
     Indication: BLOOD PRESSURE ABNORMAL
     Dosage: 25 MG, 2X/DAY
     Route: 048
  49. CRESTOR [Concomitant]
     Active Substance: ROSUVASTATIN CALCIUM
     Indication: CARDIAC DISORDER
     Dosage: UNK
     Dates: start: 2019
  50. ATIVAN [Concomitant]
     Active Substance: LORAZEPAM
     Dosage: UNK UNK, AS NEEDED (1/2-1 TABLET)
     Route: 048
     Dates: start: 20170206
  51. DOCUSATE SODIUM. [Concomitant]
     Active Substance: DOCUSATE SODIUM
     Dosage: 100 MG, 2X/DAY
  52. CELONTIN [Concomitant]
     Active Substance: METHSUXIMIDE
     Dosage: 300 MG, 2X/DAY
     Route: 048
     Dates: end: 20170927
  53. METOPROLOL TARTRATE. [Concomitant]
     Active Substance: METOPROLOL TARTRATE
     Dosage: UNK
     Dates: start: 2003
  54. CEPHALEXIN MONOHYDRATE. [Concomitant]
     Active Substance: CEPHALEXIN MONOHYDRATE
     Dosage: 1 DF, 3X/DAY
     Route: 048
  55. DICLOFENAC POTASSIUM. [Concomitant]
     Active Substance: DICLOFENAC POTASSIUM
     Indication: INFLAMMATION
     Dosage: 1 DF, 2X/DAY
     Route: 048
  56. DILANTIN [Suspect]
     Active Substance: PHENYTOIN
     Indication: SEIZURE
     Dosage: 500 MG, DAILY
     Dates: start: 20050129
  57. MIRALAX [Concomitant]
     Active Substance: POLYETHYLENE GLYCOL 3350
     Dosage: 17 MG, DAILY
     Route: 048
  58. ZETIA [Concomitant]
     Active Substance: EZETIMIBE
     Indication: CARDIAC DISORDER
     Dosage: 10 MG, DAILY
     Route: 048
     Dates: start: 20131220, end: 20140929
  59. ZETIA [Concomitant]
     Active Substance: EZETIMIBE
     Dosage: UNK
     Dates: start: 2003
  60. NITROSTAT [Concomitant]
     Active Substance: NITROGLYCERIN
     Indication: CHEST PAIN
     Dosage: 0.4 MG, AS NEEDED
     Route: 060
     Dates: start: 20140825, end: 20141008
  61. KEPPRA [Concomitant]
     Active Substance: LEVETIRACETAM
     Dosage: 2 DF, 3X/DAY
     Route: 048
     Dates: start: 20170124, end: 20170427
  62. FLEXERIL [Concomitant]
     Active Substance: CYCLOBENZAPRINE HYDROCHLORIDE
     Dosage: 10 MG, 3X/DAY (AS NEEDED)
     Route: 048
     Dates: end: 20141022

REACTIONS (16)
  - Balance disorder [Not Recovered/Not Resolved]
  - Headache [Not Recovered/Not Resolved]
  - Cerebellar atrophy [Not Recovered/Not Resolved]
  - Neuropathy peripheral [Not Recovered/Not Resolved]
  - Anxiety disorder [Unknown]
  - Cerebellar ataxia [Not Recovered/Not Resolved]
  - Gait disturbance [Not Recovered/Not Resolved]
  - Tremor [Not Recovered/Not Resolved]
  - Hypoaesthesia [Not Recovered/Not Resolved]
  - Amnesia [Not Recovered/Not Resolved]
  - Speech disorder [Not Recovered/Not Resolved]
  - Coordination abnormal [Not Recovered/Not Resolved]
  - Tarsal tunnel syndrome [Unknown]
  - Cognitive disorder [Not Recovered/Not Resolved]
  - Muscular weakness [Not Recovered/Not Resolved]
  - Loss of personal independence in daily activities [Unknown]

NARRATIVE: CASE EVENT DATE: 2005
